FAERS Safety Report 7440930-X (Version None)
Quarter: 2011Q2

REPORT INFORMATION
  Report Type: 
  Country: None (occurrence: None)
  Receive Date: 20110427
  Receipt Date: 20110414
  Transmission Date: 20111010
  Serious: Yes (Hospitalization, Other)
  Sender: FDA-Public Use
  Company Number: PHHY2011ES24549

PATIENT
  Age: 56 Year
  Sex: Male

DRUGS (9)
  1. AFINITOR [Suspect]
     Indication: CARCINOID TUMOUR
     Dosage: 10 MG, UNK
     Route: 048
     Dates: start: 20101210, end: 20110220
  2. TORISEL [Suspect]
  3. LOITIN [Concomitant]
     Dosage: 100 MG, DAILY
     Route: 048
  4. OMEPRAZOLE [Concomitant]
     Dosage: 40 MG, DAILY
     Route: 048
  5. AERO RED [Concomitant]
     Dosage: 2 DF, TID
     Route: 048
  6. RESINCOLESTIRAMINA [Concomitant]
     Dosage: 1 DF, Q8H
     Route: 048
  7. SPIRIVA [Concomitant]
     Dosage: 1 DF, DAILY
  8. SANDOSTATIN [Suspect]
     Indication: CARCINOID TUMOUR
     Dosage: 0.1 MG, Q8H
     Route: 058
  9. VENTOLIN [Concomitant]
     Dosage: 2 INHALATIONS EVERY 8 HRS

REACTIONS (5)
  - NEOPLASM MALIGNANT [None]
  - PLEURAL EFFUSION [None]
  - LUNG ABSCESS [None]
  - SMALL CELL LUNG CANCER STAGE UNSPECIFIED [None]
  - IMMUNOSUPPRESSION [None]
